FAERS Safety Report 5533301-4 (Version None)
Quarter: 2007Q4

REPORT INFORMATION
  Report Type: 
  Country: None (occurrence: None)
  Receive Date: 20071130
  Receipt Date: 20071130
  Transmission Date: 20080405
  Serious: No
  Sender: FDA-Public Use
  Company Number: None

PATIENT
  Age: 15 Year
  Sex: Female
  Weight: 77.1115 kg

DRUGS (2)
  1. SOLODYN [Suspect]
     Indication: ACNE
     Dosage: 1 CAPSULE  1XDAY
     Dates: start: 20061221, end: 20070320
  2. MINOCYCLINE HCL [Suspect]
     Indication: ACNE
     Dosage: 2 CAPSULE   2XDAY
     Dates: start: 20070320, end: 20070820

REACTIONS (1)
  - BENIGN INTRACRANIAL HYPERTENSION [None]
